FAERS Safety Report 8605354 (Version 2)
Quarter: 2013Q2

REPORT INFORMATION
  Report Type: Spontaneous
  Country: US (occurrence: US)
  Receive Date: 20120608
  Receipt Date: 20130507
  Transmission Date: 20140414
  Serious: Yes (Other)
  Sender: FDA-Public Use
  Company Number: US-ROCHE-778399

PATIENT
  Age: 30 Year
  Sex: Female
  Weight: 59.93 kg

DRUGS (7)
  1. ACCUTANE [Suspect]
     Indication: ACNE CYSTIC
     Route: 065
     Dates: start: 199901, end: 199908
  2. ACCUTANE [Suspect]
     Route: 065
     Dates: start: 200404, end: 200405
  3. AMNESTEEM [Suspect]
     Indication: ACNE
     Dosage: THERAPY DISCONTINUED
     Route: 065
     Dates: start: 200407
  4. AMNESTEEM [Suspect]
     Route: 065
     Dates: start: 200604
  5. ASACOL [Concomitant]
  6. LIALDA [Concomitant]
  7. IMODIUM [Concomitant]

REACTIONS (4)
  - Colitis ulcerative [Unknown]
  - Inflammatory bowel disease [Unknown]
  - Emotional distress [Unknown]
  - Irritable bowel syndrome [Unknown]
